FAERS Safety Report 7223084-4 (Version None)
Quarter: 2011Q1

REPORT INFORMATION
  Report Type: 
  Country: None (occurrence: None)
  Receive Date: 20110112
  Receipt Date: 20100119
  Transmission Date: 20110831
  Serious: No
  Sender: FDA-Public Use
  Company Number: US-ALLERGAN-1000462US

PATIENT
  Sex: Female

DRUGS (5)
  1. REFRESH TEARS [Concomitant]
  2. CASTOR OIL [Concomitant]
     Dosage: UNK
  3. RESTASIS [Suspect]
     Dosage: 1 GTT, QHS
     Dates: start: 20091001
  4. RESTASIS [Suspect]
     Indication: DRY EYE
     Dosage: 1 GTT, BID
     Route: 047
     Dates: start: 20090101, end: 20091001
  5. OPTIVE [Concomitant]

REACTIONS (3)
  - ASTHENOPIA [None]
  - FOREIGN BODY SENSATION IN EYES [None]
  - DRUG INEFFECTIVE [None]
